FAERS Safety Report 4345631-2 (Version None)
Quarter: 2004Q2

REPORT INFORMATION
  Report Type: 
  Country: None (occurrence: None)
  Receive Date: 20040421
  Receipt Date: 20040413
  Transmission Date: 20050107
  Serious: Yes (Death)
  Sender: FDA-Public Use
  Company Number: 2004AP02144

PATIENT
  Age: 36 Year
  Sex: Male

DRUGS (4)
  1. ATENOLOL [Suspect]
     Dosage: 500 MG DAILY
  2. NIFEDICOR [Suspect]
     Dosage: 1.2 G DAILY
  3. CLONIDINE [Suspect]
  4. ALCOHOL [Suspect]

REACTIONS (8)
  - BLOOD PRESSURE DIASTOLIC DECREASED [None]
  - DUODENITIS [None]
  - GASTRITIS HAEMORRHAGIC [None]
  - HEART RATE DECREASED [None]
  - INTESTINAL INFARCTION [None]
  - INTESTINAL ISCHAEMIA [None]
  - OVERDOSE [None]
  - RESPIRATORY FAILURE [None]
